FAERS Safety Report 24584694 (Version 1)
Quarter: 2024Q4

REPORT INFORMATION
  Report Type: Spontaneous
  Country: US (occurrence: None)
  Receive Date: 20241106
  Receipt Date: 20241106
  Transmission Date: 20250115
  Serious: Yes (Other)
  Sender: Public
  Company Number: None

PATIENT
  Age: 34 Year
  Sex: Female
  Weight: 77.85 kg

DRUGS (6)
  1. TIRZEPATIDE [Suspect]
     Active Substance: TIRZEPATIDE
     Indication: Weight decreased
     Dosage: OTHER QUANTITY : 1 INJECTION(S);?OTHER FREQUENCY : WEEKLY;?
     Route: 058
     Dates: start: 20241102, end: 20241106
  2. IVABRADINE [Concomitant]
     Active Substance: IVABRADINE
  3. LOSARTAN [Concomitant]
     Active Substance: LOSARTAN
  4. OMEPRAZOLE [Concomitant]
     Active Substance: OMEPRAZOLE
  5. NUVARING [Concomitant]
     Active Substance: ETHINYL ESTRADIOL\ETONOGESTREL
  6. VITAMIN D3 [Concomitant]
     Active Substance: CHOLECALCIFEROL

REACTIONS (6)
  - Product contamination [None]
  - Injection site erythema [None]
  - Injection site swelling [None]
  - Injection site warmth [None]
  - Injection site pruritus [None]
  - Pyrexia [None]

NARRATIVE: CASE EVENT DATE: 20241102
